FAERS Safety Report 16160556 (Version 5)
Quarter: 2023Q1

REPORT INFORMATION
  Report Type: Other
  Country: IT (occurrence: IT)
  Receive Date: 20190405
  Receipt Date: 20230309
  Transmission Date: 20230418
  Serious: Yes (Hospitalization)
  Sender: FDA-Public Use
  Company Number: IT-ROCHE-2297043

PATIENT
  Age: 51 Year
  Sex: Female

DRUGS (10)
  1. OCRELIZUMAB [Suspect]
     Active Substance: OCRELIZUMAB
     Indication: Multiple sclerosis
     Route: 042
     Dates: start: 20180312, end: 20181004
  2. OCRELIZUMAB [Suspect]
     Active Substance: OCRELIZUMAB
     Route: 042
     Dates: start: 20181004, end: 20190404
  3. VANCOMYCIN [Concomitant]
     Active Substance: VANCOMYCIN
  4. ADALAT [Concomitant]
     Active Substance: NIFEDIPINE
     Route: 048
  5. OXYBUTYNIN [Concomitant]
     Active Substance: OXYBUTYNIN
     Route: 048
  6. DOXYCYCLINE [Concomitant]
     Active Substance: DOXYCYCLINE
  7. MEROPENEM [Concomitant]
     Active Substance: MEROPENEM
  8. LIORESAL [Concomitant]
     Active Substance: BACLOFEN
     Indication: Muscle spasticity
     Route: 048
  9. INTERFERON BETA-1B [Concomitant]
     Active Substance: INTERFERON BETA-1B
     Dates: start: 20000202, end: 20020202
  10. LANSOPRAZOLE [Concomitant]
     Active Substance: LANSOPRAZOLE
     Route: 048

REACTIONS (2)
  - Pneumonia [Recovered/Resolved with Sequelae]
  - Pneumonitis [Recovering/Resolving]

NARRATIVE: CASE EVENT DATE: 20190310
